FAERS Safety Report 12003817 (Version 3)
Quarter: 2016Q2

REPORT INFORMATION
  Report Type: Report from Study
  Country: US (occurrence: US)
  Receive Date: 20160204
  Receipt Date: 20160411
  Transmission Date: 20160815
  Serious: No
  Sender: FDA-Public Use
  Company Number: US-AMGEN-USASP2016011330

PATIENT
  Age: 56 Year
  Sex: Male

DRUGS (1)
  1. ENBREL [Suspect]
     Active Substance: ETANERCEPT
     Indication: PSORIATIC ARTHROPATHY
     Dosage: 50 MG, QWK
     Route: 058
     Dates: start: 2002

REACTIONS (6)
  - Nasopharyngitis [Recovered/Resolved]
  - Headache [Recovering/Resolving]
  - Tinnitus [Recovering/Resolving]
  - Upper respiratory tract infection [Recovered/Resolved]
  - Ear discomfort [Recovering/Resolving]
  - Sinusitis [Recovered/Resolved]
